FAERS Safety Report 24583030 (Version 2)
Quarter: 2024Q4

REPORT INFORMATION
  Report Type: Spontaneous
  Country: JP (occurrence: JP)
  Receive Date: 20241106
  Receipt Date: 20241220
  Transmission Date: 20250115
  Serious: Yes (Death, Hospitalization)
  Sender: RECORDATI
  Company Number: JP-RECORDATI RARE DISEASE INC.-2024002494

PATIENT

DRUGS (14)
  1. NEOPROFEN [Suspect]
     Active Substance: IBUPROFEN LYSINE
     Indication: Patent ductus arteriosus
     Dosage: 2.4 MILLIGRAM
     Route: 042
     Dates: start: 20221012, end: 20221012
  2. NEOPROFEN [Suspect]
     Active Substance: IBUPROFEN LYSINE
     Dosage: 2.4 MILLIGRAM
     Route: 042
     Dates: start: 20221014, end: 20221014
  3. NEOPROFEN [Suspect]
     Active Substance: IBUPROFEN LYSINE
     Dosage: 2.8 MILLIGRAM
     Route: 042
     Dates: start: 20221015, end: 20221015
  4. MEROPENEM [Concomitant]
     Active Substance: MEROPENEM
     Indication: Sepsis
     Dosage: UNK
     Route: 042
     Dates: start: 20221012, end: 20221031
  5. VANCOMYCIN [Concomitant]
     Active Substance: VANCOMYCIN
     Indication: Sepsis
     Dosage: UNK
     Route: 042
     Dates: start: 20221012, end: 20221031
  6. FOSFLUCONAZOLE [Concomitant]
     Active Substance: FOSFLUCONAZOLE
     Indication: Antifungal prophylaxis
     Dosage: UNK
     Route: 042
     Dates: start: 20221012, end: 20221110
  7. FUROSEMIDE [Concomitant]
     Active Substance: FUROSEMIDE
     Indication: Patent ductus arteriosus
     Dosage: UNK
     Route: 042
     Dates: start: 20221012, end: 20221112
  8. FUROSEMIDE [Concomitant]
     Active Substance: FUROSEMIDE
     Indication: Capillary leak syndrome
  9. FUROSEMIDE [Concomitant]
     Active Substance: FUROSEMIDE
     Indication: Adrenal insufficiency
  10. FUROSEMIDE [Concomitant]
     Active Substance: FUROSEMIDE
     Indication: Circulatory collapse
  11. DOPAMINE [Concomitant]
     Active Substance: DOPAMINE HYDROCHLORIDE
     Indication: Patent ductus arteriosus
     Dosage: UNK
     Route: 042
     Dates: start: 20221012, end: 20221105
  12. DOPAMINE [Concomitant]
     Active Substance: DOPAMINE HYDROCHLORIDE
     Indication: Capillary leak syndrome
  13. DOPAMINE [Concomitant]
     Active Substance: DOPAMINE HYDROCHLORIDE
     Indication: Adrenal insufficiency
  14. DOPAMINE [Concomitant]
     Active Substance: DOPAMINE HYDROCHLORIDE
     Indication: Circulatory collapse

REACTIONS (2)
  - Circulatory failure neonatal [Fatal]
  - Sepsis [Recovering/Resolving]

NARRATIVE: CASE EVENT DATE: 20221012
